FAERS Safety Report 10257751 (Version 1)
Quarter: 2014Q2

REPORT INFORMATION
  Report Type: Spontaneous
  Country: US (occurrence: US)
  Receive Date: 20140625
  Receipt Date: 20140625
  Transmission Date: 20141212
  Serious: No
  Sender: FDA-Public Use
  Company Number: US-LUNDBECK-DKLU1095331

PATIENT
  Sex: Female

DRUGS (6)
  1. SABRIL (FOR ORAL SOLUTION) [Suspect]
     Indication: COMPLEX PARTIAL SEIZURES
     Route: 048
     Dates: start: 20131105
  2. SABRIL (FOR ORAL SOLUTION) [Suspect]
     Route: 048
  3. SABRIL     (TABLET) [Suspect]
     Indication: COMPLEX PARTIAL SEIZURES
  4. SABRIL     (TABLET) [Suspect]
  5. SABRIL     (TABLET) [Suspect]
  6. SABRIL     (TABLET) [Suspect]

REACTIONS (4)
  - Aversion [Unknown]
  - Vomiting [Unknown]
  - Underdose [Unknown]
  - Wrong technique in drug usage process [Unknown]
